FAERS Safety Report 13836468 (Version 3)
Quarter: 2018Q4

REPORT INFORMATION
  Report Type: Report from Study
  Country: US (occurrence: US)
  Receive Date: 20170804
  Receipt Date: 20181025
  Transmission Date: 20190204
  Serious: Yes (Death, Hospitalization)
  Sender: FDA-Public Use
  Company Number: US-ACTELION-A-US2017-157600

PATIENT
  Age: 78 Year
  Sex: Male
  Weight: 81.63 kg

DRUGS (10)
  1. ADEMPAS [Concomitant]
     Active Substance: RIOCIGUAT
     Dosage: 2 MG, TID
  2. LACTULOSE. [Concomitant]
     Active Substance: LACTULOSE
     Dosage: 10 G, QD
  3. PRAVASTATIN. [Concomitant]
     Active Substance: PRAVASTATIN
     Dosage: 10 MG, QD
  4. COUMADIN [Concomitant]
     Active Substance: WARFARIN SODIUM
  5. ALLOPURINOL. [Concomitant]
     Active Substance: ALLOPURINOL
     Dosage: 300 MG, QD
  6. METOPROLOL. [Concomitant]
     Active Substance: METOPROLOL
     Dosage: 25 MG, BID
  7. LASIX [Concomitant]
     Active Substance: FUROSEMIDE
     Dosage: 40 MG, BID
  8. OPSUMIT [Suspect]
     Active Substance: MACITENTAN
     Indication: PULMONARY ARTERIAL HYPERTENSION
     Dosage: 10 MG, QD
     Route: 048
  9. ELIQUIS [Concomitant]
     Active Substance: APIXABAN
     Dosage: 2.5 MG, BID
  10. POTASSIUM [Concomitant]
     Active Substance: POTASSIUM
     Dosage: 10 MEQ, QD

REACTIONS (4)
  - Emphysema [Fatal]
  - Localised infection [Unknown]
  - Pulmonary hypertension [Fatal]
  - Combined pulmonary fibrosis and emphysema [Fatal]

NARRATIVE: CASE EVENT DATE: 20180829
